FAERS Safety Report 19357276 (Version 2)
Quarter: 2021Q2

REPORT INFORMATION
  Report Type: Report from Study
  Country: KR (occurrence: KR)
  Receive Date: 20210602
  Receipt Date: 20210605
  Transmission Date: 20210717
  Serious: Yes (Hospitalization)
  Sender: FDA-Public Use
  Company Number: KR-AMGEN-KORCT2021083752

PATIENT
  Age: 79 Year
  Sex: Male

DRUGS (20)
  1. MEGESTROL [Concomitant]
     Active Substance: MEGESTROL
     Dosage: 1 UNK, QD
     Dates: start: 20140331, end: 20140407
  2. FILGRASTIM [Suspect]
     Active Substance: FILGRASTIM
     Dosage: 1 UNK, QD
     Route: 065
     Dates: start: 20140414, end: 20140414
  3. ALLOPURINOL. [Concomitant]
     Active Substance: ALLOPURINOL
     Dosage: 1 DOSAGE FORM, QD
     Dates: start: 20140305, end: 20140317
  4. FILGRASTIM [Suspect]
     Active Substance: FILGRASTIM
     Dosage: 1 UNK, QD
     Route: 065
     Dates: start: 20140430, end: 20140503
  5. DECITABINE. [Concomitant]
     Active Substance: DECITABINE
     Indication: PRODUCT USED FOR UNKNOWN INDICATION
     Dosage: 37.6 UNK
     Dates: start: 20140303, end: 20140307
  6. ALLOPURINOL. [Concomitant]
     Active Substance: ALLOPURINOL
     Indication: PRODUCT USED FOR UNKNOWN INDICATION
     Dosage: 1 DOSAGE FORM, QD
     Dates: start: 20140227, end: 20140228
  7. CIPROFLOXACIN. [Concomitant]
     Active Substance: CIPROFLOXACIN
     Indication: PRODUCT USED FOR UNKNOWN INDICATION
     Dosage: 1 DOSAGE FORM, QD
     Route: 065
     Dates: start: 20140417, end: 20140423
  8. FILGRASTIM [Suspect]
     Active Substance: FILGRASTIM
     Dosage: 1 UNK, QD
     Route: 065
     Dates: start: 20140428, end: 20140428
  9. FINASTERIDE. [Concomitant]
     Active Substance: FINASTERIDE
     Indication: PRODUCT USED FOR UNKNOWN INDICATION
     Dosage: 1 DOSAGE FORM, QD
  10. FILGRASTIM [Suspect]
     Active Substance: FILGRASTIM
     Dosage: 1 UNK, QD
     Route: 065
     Dates: start: 20140411, end: 20140411
  11. FILGRASTIM [Suspect]
     Active Substance: FILGRASTIM
     Dosage: 1 UNK, QD
     Route: 065
     Dates: start: 20140421, end: 20140421
  12. FILGRASTIM [Suspect]
     Active Substance: FILGRASTIM
     Dosage: 1 UNK, QD
     Route: 065
     Dates: start: 20140425, end: 20140425
  13. DALTEPARIN [Concomitant]
     Active Substance: DALTEPARIN
     Indication: PRODUCT USED FOR UNKNOWN INDICATION
     Dosage: 1 UNK, QD
     Dates: start: 20140430, end: 20140708
  14. TAMSULOSIN [Concomitant]
     Active Substance: TAMSULOSIN
     Indication: PRODUCT USED FOR UNKNOWN INDICATION
     Dosage: 1 UNK, QD
  15. FILGRASTIM [Suspect]
     Active Substance: FILGRASTIM
     Indication: PRODUCT USED FOR UNKNOWN INDICATION
     Dosage: 1 UNK, QD
     Route: 065
     Dates: start: 20140317, end: 20140317
  16. FILGRASTIM [Suspect]
     Active Substance: FILGRASTIM
     Dosage: 1 UNK, QD
     Route: 065
     Dates: start: 20140417, end: 20140417
  17. DECITABINE. [Concomitant]
     Active Substance: DECITABINE
     Dosage: 37.2 UNK, QD
     Dates: start: 20140407, end: 20140411
  18. MEGESTROL [Concomitant]
     Active Substance: MEGESTROL
     Indication: PRODUCT USED FOR UNKNOWN INDICATION
     Dosage: 1 UNK, QD
     Dates: start: 20140317, end: 20140330
  19. POLYSTYRENE SULFONATE CA [Concomitant]
     Indication: PRODUCT USED FOR UNKNOWN INDICATION
     Dosage: 3 UNK, QD
     Dates: start: 20140331, end: 20140404
  20. POSACONAZOLE [Concomitant]
     Active Substance: POSACONAZOLE
     Indication: PRODUCT USED FOR UNKNOWN INDICATION
     Dosage: 5 UNK, QD
     Dates: start: 20140303, end: 20140331

REACTIONS (2)
  - Dyspnoea [Recovered/Resolved]
  - Dehydration [Recovered/Resolved]

NARRATIVE: CASE EVENT DATE: 20140331
